FAERS Safety Report 10495166 (Version 1)
Quarter: 2014Q4

REPORT INFORMATION
  Report Type: Spontaneous
  Country: US (occurrence: US)
  Receive Date: 20141003
  Receipt Date: 20141003
  Transmission Date: 20150528
  Serious: No
  Sender: FDA-Public Use
  Company Number: US-JNJFOC-20140920567

PATIENT
  Sex: Female
  Weight: 102.06 kg

DRUGS (3)
  1. DURAGESIC [Suspect]
     Active Substance: FENTANYL
     Indication: PAIN
     Route: 062
  2. DURAGESIC [Suspect]
     Active Substance: FENTANYL
     Indication: PAIN
     Route: 062
  3. OXYCODONE [Concomitant]
     Active Substance: OXYCODONE
     Route: 065

REACTIONS (12)
  - Product quality issue [Unknown]
  - Weight decreased [Not Recovered/Not Resolved]
  - Skin irritation [Unknown]
  - Arthropod bite [Unknown]
  - Therapeutic response decreased [Unknown]
  - Pain [Unknown]
  - Wrong technique in drug usage process [Unknown]
  - Contusion [Unknown]
  - Limb injury [Unknown]
  - Injury [Unknown]
  - Inappropriate schedule of drug administration [Unknown]
  - Decreased appetite [Unknown]
